FAERS Safety Report 7568205-9 (Version None)
Quarter: 2011Q2

REPORT INFORMATION
  Report Type: 
  Country: None (occurrence: None)
  Receive Date: 20110623
  Receipt Date: 20110617
  Transmission Date: 20111010
  Serious: Yes (Other)
  Sender: FDA-Public Use
  Company Number: US-SANOFI-AVENTIS-2011SA038805

PATIENT
  Age: 67 Year
  Sex: Male

DRUGS (1)
  1. LANTUS [Suspect]
     Dosage: ABOUT 90 UNITS DAILY
     Route: 058
     Dates: start: 20030101

REACTIONS (2)
  - RENAL CANCER [None]
  - HEPATIC NEOPLASM MALIGNANT [None]
